FAERS Safety Report 9556032 (Version 1)
Quarter: 2013Q3

REPORT INFORMATION
  Report Type: Spontaneous
  Country: US (occurrence: None)
  Receive Date: 20130726
  Receipt Date: 20130726
  Transmission Date: 20140515
  Serious: Yes (Hospitalization)
  Sender: FDA-Public Use
  Company Number: UTC-023397

PATIENT
  Age: 44 Year
  Sex: Female
  Weight: 60 kg

DRUGS (11)
  1. REMODULIN (2.5 MILLIGRAM/MILLILITERS, INJECTION FOR INFUSION) (TREPROSTINIL SODIUM) [Suspect]
     Indication: COR PULMONALE CHRONIC
     Dosage: 84.44 MG/KG (0.05725 UG/KG, 1 IN 1 MIN), INTRAVENOUS DRIP
     Route: 041
     Dates: start: 201102
  2. REVATIO (SILDENAFIL CITRATE) (UNKNOWN) (SILDENAFIL) [Concomitant]
  3. TRACLEER (BOSENTAN) [Concomitant]
  4. SYMBICORT [Concomitant]
  5. DIGOXIN [Concomitant]
  6. MARINOL [Concomitant]
  7. LASIX (FUROSEMIDE) [Concomitant]
  8. LANTUS (INSULIN GLARGINE) [Concomitant]
  9. HUMALOG (INSULIN) [Concomitant]
  10. K-DUR KLOR-CON (POTASSIUM CHLORIDE) [Concomitant]
  11. ALDACTONE (SPIRONOLACTONE) [Concomitant]

REACTIONS (2)
  - Hypotension [None]
  - Device related infection [None]
